FAERS Safety Report 18627636 (Version 1)
Quarter: 2020Q4

REPORT INFORMATION
  Report Type: Spontaneous
  Country: US (occurrence: US)
  Receive Date: 20201216
  Receipt Date: 20201216
  Transmission Date: 20210114
  Serious: Yes (Other)
  Sender: FDA-Public Use
  Company Number: None

PATIENT
  Age: 73 Year
  Sex: Female
  Weight: 64.9 kg

DRUGS (6)
  1. ONDANSETRON [Concomitant]
     Active Substance: ONDANSETRON
     Dates: start: 20201014, end: 20201014
  2. DECADRON [Concomitant]
     Active Substance: DEXAMETHASONE
     Dates: start: 20201014, end: 20201014
  3. BENADRYL [Concomitant]
     Active Substance: DIPHENHYDRAMINE HYDROCHLORIDE
     Dates: start: 20201014, end: 20201014
  4. EMEND [Suspect]
     Active Substance: APREPITANT
     Indication: NAUSEA
     Dosage: ?          OTHER FREQUENCY:ONCE;?
     Route: 042
     Dates: start: 20201014, end: 20201014
  5. PEPCID [Concomitant]
     Active Substance: FAMOTIDINE
     Dates: start: 20201014, end: 20201014
  6. OLANZAPINE. [Concomitant]
     Active Substance: OLANZAPINE
     Dates: start: 20201014, end: 20201014

REACTIONS (3)
  - Infusion related reaction [None]
  - Dyspnoea [None]
  - Flushing [None]

NARRATIVE: CASE EVENT DATE: 20201014
